FAERS Safety Report 18401251 (Version 2)
Quarter: 2020Q4

REPORT INFORMATION
  Report Type: Spontaneous
  Country: US (occurrence: US)
  Receive Date: 20201019
  Receipt Date: 20201030
  Transmission Date: 20210114
  Serious: No
  Sender: FDA-Public Use
  Company Number: US-009507513-2010USA004401

PATIENT
  Age: 67 Year
  Sex: Male
  Weight: 87.53 kg

DRUGS (1)
  1. KEYTRUDA [Suspect]
     Active Substance: PEMBROLIZUMAB
     Indication: RENAL CELL CARCINOMA
     Dosage: UNK
     Route: 042

REACTIONS (2)
  - Arthropod sting [Not Recovered/Not Resolved]
  - Local reaction [Not Recovered/Not Resolved]

NARRATIVE: CASE EVENT DATE: 20201011
